FAERS Safety Report 15798387 (Version 2)
Quarter: 2019Q1

REPORT INFORMATION
  Report Type: Spontaneous
  Country: JP (occurrence: JP)
  Receive Date: 20190108
  Receipt Date: 20190210
  Transmission Date: 20190417
  Serious: No
  Sender: FDA-Public Use
  Company Number: PHHY2019JP000460

PATIENT
  Age: 61 Year
  Sex: Male

DRUGS (1)
  1. NOVASTAN [Suspect]
     Active Substance: ARGATROBAN
     Indication: CARDIAC FAILURE CONGESTIVE
     Dosage: 0.07-0.08 UG/KG/MIN
     Route: 051

REACTIONS (1)
  - Bleeding time prolonged [Unknown]
